FAERS Safety Report 6060058-3 (Version None)
Quarter: 2009Q1

REPORT INFORMATION
  Report Type: 
  Country: None (occurrence: None)
  Receive Date: 20090128
  Receipt Date: 20090116
  Transmission Date: 20090719
  Serious: Yes (Death)
  Sender: FDA-Public Use
  Company Number: 2009S1000074

PATIENT
  Age: 69 Year
  Sex: Male

DRUGS (14)
  1. DURACLON [Suspect]
     Dosage: PO
     Route: 048
     Dates: end: 20070101
  2. AMLODIPINE [Suspect]
     Dosage: PO
     Route: 048
     Dates: end: 20070101
  3. METOPROLOL TARTRATE [Suspect]
     Dosage: PO
     Route: 048
     Dates: end: 20070101
  4. SALICYLATE [Suspect]
     Dosage: PO
     Route: 048
     Dates: end: 20070101
  5. ALBUTEROL [Suspect]
     Dosage: PO
     Route: 048
     Dates: end: 20070101
  6. RANITIDINE [Suspect]
     Dosage: PO
     Route: 048
     Dates: end: 20070101
  7. TIAGABINE HCL [Suspect]
     Dosage: PO
     Route: 048
     Dates: end: 20070101
  8. DIURETIC [Suspect]
     Dosage: PO
     Route: 048
     Dates: end: 20070101
  9. CLOPIDOGREL [Suspect]
     Dosage: PO
     Route: 048
     Dates: end: 20070101
  10. LISINOPRIL [Suspect]
     Dosage: PO
     Route: 048
     Dates: end: 20070101
  11. EZETIMIBE [Suspect]
     Dosage: PO
     Route: 048
     Dates: end: 20070101
  12. LORAZEPAM [Suspect]
     Dosage: PO
     Route: 048
     Dates: end: 20070101
  13. ATORVASTATIN [Suspect]
     Dosage: PO
     Route: 048
     Dates: end: 20070101
  14. PHENYTOIN [Suspect]
     Dosage: PO
     Route: 048
     Dates: end: 20070101

REACTIONS (1)
  - COMPLETED SUICIDE [None]
